FAERS Safety Report 21000780 (Version 1)
Quarter: 2022Q3

REPORT INFORMATION
  Report Type: Spontaneous
  Country: JP (occurrence: JP)
  Receive Date: 20220623
  Receipt Date: 20220623
  Transmission Date: 20221027
  Serious: Yes (Death)
  Sender: FDA-Public Use
  Company Number: JP-NOVARTISPH-NVSJ2022JP092592

PATIENT
  Age: 22 Year
  Sex: Male

DRUGS (1)
  1. ARRANON [Suspect]
     Active Substance: NELARABINE
     Indication: T-cell lymphoma
     Dosage: UNK
     Route: 041
     Dates: start: 20210616

REACTIONS (3)
  - T-cell lymphoma [Fatal]
  - Malignant neoplasm progression [Fatal]
  - Nervous system disorder [Fatal]

NARRATIVE: CASE EVENT DATE: 20210701
